FAERS Safety Report 7406649-6 (Version None)
Quarter: 2011Q2

REPORT INFORMATION
  Report Type: 
  Country: None (occurrence: None)
  Receive Date: 20110411
  Receipt Date: 20110404
  Transmission Date: 20111010
  Serious: Yes (Hospitalization)
  Sender: FDA-Public Use
  Company Number: JP-BRISTOL-MYERS SQUIBB COMPANY-15510415

PATIENT
  Age: 32 Year
  Sex: Female

DRUGS (2)
  1. ABILIFY [Suspect]
     Indication: SCHIZOPHRENIA
     Dosage: INCREASED TO 30MG
     Route: 048
  2. OLANZAPINE [Concomitant]

REACTIONS (3)
  - PSYCHOMOTOR HYPERACTIVITY [None]
  - HALLUCINATION, AUDITORY [None]
  - DELUSION [None]
